FAERS Safety Report 16868213 (Version 1)
Quarter: 2019Q3

REPORT INFORMATION
  Report Type: Spontaneous
  Country: CN (occurrence: CN)
  Receive Date: 20190930
  Receipt Date: 20190930
  Transmission Date: 20191005
  Serious: Yes (Hospitalization)
  Sender: FDA-Public Use
  Company Number: CN-PFIZER INC-2019412872

PATIENT
  Age: 14 Year
  Sex: Female
  Weight: 39 kg

DRUGS (2)
  1. METHOTREXATE. [Suspect]
     Active Substance: METHOTREXATE
     Indication: BONE SARCOMA
  2. METHOTREXATE. [Suspect]
     Active Substance: METHOTREXATE
     Indication: OSTEOSARCOMA
     Dosage: 17 G, 1X/DAY
     Route: 041
     Dates: start: 20190912, end: 20190912

REACTIONS (10)
  - Hepatic function abnormal [Recovering/Resolving]
  - Total bile acids increased [Recovering/Resolving]
  - Blood lactate dehydrogenase increased [Recovering/Resolving]
  - Gamma-glutamyltransferase increased [Recovering/Resolving]
  - Blood creatinine increased [Recovering/Resolving]
  - Alpha hydroxybutyrate dehydrogenase increased [Recovering/Resolving]
  - Drug level increased [Recovering/Resolving]
  - Red blood cell count decreased [Recovering/Resolving]
  - Prothrombin time prolonged [Recovering/Resolving]
  - Haemoglobin decreased [Recovering/Resolving]

NARRATIVE: CASE EVENT DATE: 20190914
